FAERS Safety Report 7040949-7 (Version None)
Quarter: 2010Q4

REPORT INFORMATION
  Report Type: 
  Country: None (occurrence: None)
  Receive Date: 20101013
  Receipt Date: 20100922
  Transmission Date: 20110411
  Serious: Yes (Hospitalization)
  Sender: FDA-Public Use
  Company Number: HU-US-EMD SERONO, INC.-7014823

PATIENT
  Sex: Male

DRUGS (1)
  1. CILENGITIDE [Suspect]
     Indication: GLIOBLASTOMA MULTIFORME

REACTIONS (2)
  - LEUKOPENIA [None]
  - THROMBOCYTOPENIA [None]
